FAERS Safety Report 5958962-7 (Version None)
Quarter: 2008Q4

REPORT INFORMATION
  Report Type: 
  Country: None (occurrence: None)
  Receive Date: 20081118
  Receipt Date: 20081111
  Transmission Date: 20090506
  Serious: Yes (Hospitalization)
  Sender: FDA-Public Use
  Company Number: B0546196A

PATIENT
  Age: 67 Year
  Sex: 0

DRUGS (2)
  1. LAPATINIB (FORMULATION UNKNOWN) (LAPATINIB) [Suspect]
     Indication: ADENOCARCINOMA
     Dosage: 750 MG/ PER DAY/ ORAL
     Route: 048
  2. CARBOPLATIN [Suspect]
     Indication: ADENOCARCINOMA
     Dosage: INTRAVENOUS
     Route: 042

REACTIONS (2)
  - ABDOMINAL PAIN [None]
  - FATIGUE [None]
